FAERS Safety Report 9272516 (Version 1)
Quarter: 2013Q2

REPORT INFORMATION
  Report Type: Spontaneous
  Country: US (occurrence: US)
  Receive Date: 20130506
  Receipt Date: 20130506
  Transmission Date: 20140414
  Serious: No
  Sender: FDA-Public Use
  Company Number: US-ASTRAZENECA-2012SE81764

PATIENT
  Sex: Female

DRUGS (6)
  1. PRILOSEC OTC [Suspect]
     Indication: COUGH
     Route: 048
     Dates: start: 20121001, end: 20121005
  2. ZESTRIL [Suspect]
     Indication: PRODUCT USED FOR UNKNOWN INDICATION
     Route: 048
  3. ANTIHYPERTENSIVES [Concomitant]
     Dosage: UNKNOWN
  4. BABY ASPIRIN [Concomitant]
     Dosage: UNKNOWN
  5. CALCIUM [Concomitant]
     Dosage: UNKNOWN
  6. MULTIPLE VITAMINS [Concomitant]
     Dosage: UNKNOWN

REACTIONS (3)
  - Drug hypersensitivity [Unknown]
  - Abdominal pain [Recovered/Resolved]
  - Off label use [Unknown]
